FAERS Safety Report 25216721 (Version 1)
Quarter: 2025Q2

REPORT INFORMATION
  Report Type: Spontaneous
  Country: US (occurrence: US)
  Receive Date: 20250419
  Receipt Date: 20250419
  Transmission Date: 20250717
  Serious: No
  Sender: APOTEX
  Company Number: US-APOTEX-2025AP003949

PATIENT
  Sex: Female

DRUGS (1)
  1. BRIMONIDINE TARTRATE [Suspect]
     Active Substance: BRIMONIDINE TARTRATE
     Indication: Product used for unknown indication
     Dosage: 1 GTT DROPS, BID
     Route: 047
     Dates: start: 202503

REACTIONS (2)
  - Product dose omission issue [Unknown]
  - Product container seal issue [Unknown]

NARRATIVE: CASE EVENT DATE: 20250301
